FAERS Safety Report 20153459 (Version 1)
Quarter: 2021Q4

REPORT INFORMATION
  Report Type: Report from Study
  Country: CA (occurrence: CA)
  Receive Date: 20211206
  Receipt Date: 20211206
  Transmission Date: 20220303
  Serious: Yes (Death)
  Sender: FDA-Public Use
  Company Number: CA-JNJFOC-20210917343

PATIENT
  Sex: Female

DRUGS (2)
  1. IMBRUVICA [Suspect]
     Active Substance: IBRUTINIB
     Indication: Mantle cell lymphoma
     Dosage: STARTED ON 4 CAPSULES OF IMBRUVICA, AND DOSE REDUCED TO 1 CAPSULE DAILY
     Route: 048
     Dates: end: 2018
  2. IMBRUVICA [Suspect]
     Active Substance: IBRUTINIB
     Route: 048
     Dates: start: 2018

REACTIONS (2)
  - Death [Fatal]
  - Diarrhoea [Not Recovered/Not Resolved]
